FAERS Safety Report 6234357-6 (Version None)
Quarter: 2009Q2

REPORT INFORMATION
  Report Type: 
  Country: None (occurrence: None)
  Receive Date: 20090615
  Receipt Date: 20090511
  Transmission Date: 20091009
  Serious: No
  Sender: FDA-Public Use
  Company Number: DSA_33630_2009

PATIENT
  Sex: Female

DRUGS (3)
  1. XENAZINE [Suspect]
     Indication: SYDENHAM'S CHOREA
     Dosage: 25 MG TID, DF
     Dates: start: 20090202, end: 20090201
  2. XENAZINE [Suspect]
     Indication: SYDENHAM'S CHOREA
     Dosage: 25 MG TID, DF
     Dates: start: 20090201, end: 20090507
  3. BOTULINUM TOXIN [Concomitant]

REACTIONS (2)
  - DRUG INEFFECTIVE FOR UNAPPROVED INDICATION [None]
  - NAUSEA [None]
